FAERS Safety Report 8425865 (Version 3)
Quarter: 2013Q3

REPORT INFORMATION
  Report Type: Report from Study
  Country: US (occurrence: US)
  Receive Date: 20120224
  Receipt Date: 20130830
  Transmission Date: 20140515
  Serious: Yes (Hospitalization, Other)
  Sender: FDA-Public Use
  Company Number: PHHO2012US001959

PATIENT
  Age: 56 Year
  Sex: Female
  Weight: 84.58 kg

DRUGS (17)
  1. BLINDED ACZ885 [Suspect]
     Indication: CARDIOVASCULAR EVENT PROPHYLAXIS
     Dosage: CODE NOT BROKEN
     Route: 058
     Dates: start: 20110906, end: 20111206
  2. BLINDED NO TREATMENT RECEIVED [Suspect]
     Indication: CARDIOVASCULAR EVENT PROPHYLAXIS
     Dosage: CODE NOT BROKEN
     Route: 058
     Dates: start: 20110906, end: 20111206
  3. BLINDED PLACEBO [Suspect]
     Indication: CARDIOVASCULAR EVENT PROPHYLAXIS
     Dosage: CODE NOT BROKEN
     Route: 058
     Dates: start: 20110906, end: 20111206
  4. PLAVIX [Concomitant]
     Indication: CORONARY ARTERY DISEASE
     Dosage: 75 MG, QD
     Dates: start: 20101029
  5. CARVEDILOL [Concomitant]
     Indication: CORONARY ARTERY DISEASE
     Dosage: 6.25 MG, BID
     Dates: start: 20101130
  6. CARVEDILOL [Concomitant]
     Indication: HYPERTENSION
  7. LISINOPRIL [Concomitant]
     Indication: CORONARY ARTERY DISEASE
     Dosage: 2.5 MG, QD
     Dates: start: 20101130
  8. LISINOPRIL [Concomitant]
     Indication: HYPERTENSION
  9. FENOFIBRATE [Concomitant]
     Indication: DYSLIPIDAEMIA
     Dosage: 134 MG, QD
     Dates: start: 20101030
  10. METOPROLOL [Concomitant]
     Dosage: 12.5 MG, BID
     Route: 048
  11. RANEXA [Concomitant]
     Dosage: 1000 MG, BID
     Route: 048
  12. SIMVASTATIN [Concomitant]
     Indication: DYSLIPIDAEMIA
     Dosage: 40 MG, QD
     Dates: start: 20101030
  13. NITROGLYCERINE [Concomitant]
     Dosage: UNK, PRN
  14. CRESTOR [Concomitant]
     Dosage: 20 MG, QHS
     Route: 048
  15. LASIX [Concomitant]
     Dosage: 20 MG, QD
     Route: 048
  16. ASPIRIN [Concomitant]
     Dosage: 325 MG, QD
     Route: 048
  17. ASA [Concomitant]
     Indication: CORONARY ARTERY DISEASE
     Dosage: 325 MG, QD
     Dates: start: 20101029

REACTIONS (3)
  - Myocardial infarction [Unknown]
  - Pneumonia [Recovered/Resolved]
  - Concomitant disease progression [Recovered/Resolved]
